FAERS Safety Report 14579109 (Version 1)
Quarter: 2018Q1

REPORT INFORMATION
  Report Type: Spontaneous
  Country: JP (occurrence: JP)
  Receive Date: 20180227
  Receipt Date: 20180227
  Transmission Date: 20180509
  Serious: Yes (Death)
  Sender: FDA-Public Use
  Company Number: PHHY2018JP032696

PATIENT
  Age: 75 Year

DRUGS (1)
  1. TACROLIMUS. [Suspect]
     Active Substance: TACROLIMUS
     Indication: RHEUMATOID ARTHRITIS
     Route: 065

REACTIONS (3)
  - Product use in unapproved indication [Unknown]
  - Cardiac failure [Fatal]
  - Stress cardiomyopathy [Fatal]
